FAERS Safety Report 7463728-5 (Version None)
Quarter: 2011Q2

REPORT INFORMATION
  Report Type: 
  Country: None (occurrence: None)
  Receive Date: 20110506
  Receipt Date: 20110404
  Transmission Date: 20111010
  Serious: Yes (Death, Hospitalization)
  Sender: FDA-Public Use
  Company Number: IT-BAYER-2011-015201

PATIENT
  Age: 74 Year
  Sex: Female
  Weight: 50 kg

DRUGS (20)
  1. ZOMETA [Concomitant]
     Indication: METASTASES TO BONE
     Dosage: DAILY DOSE .13 MG
     Dates: start: 20100701
  2. PEGINTERFERON ALFA-2B [Suspect]
     Indication: PALMAR-PLANTAR ERYTHRODYSAESTHESIA SYNDROME
     Dosage: DAILY DOSE 5 ML
     Dates: start: 20101108
  3. NEXAVAR [Suspect]
     Indication: THYROID CANCER
     Dosage: 400 MG, UNK
     Route: 048
     Dates: start: 20101108, end: 20101208
  4. NEXAVAR [Suspect]
     Dosage: 400 MG, BID
     Route: 048
     Dates: start: 20101227, end: 20110115
  5. CACIT [Concomitant]
     Indication: PREMEDICATION
     Dosage: DAILY DOSE 1000 MG
     Dates: start: 20100701
  6. MYCOSTATIN [Concomitant]
     Indication: ORAL DISCOMFORT
     Dosage: DAILY DOSE 100000 U/ML
     Dates: start: 20101115, end: 20101130
  7. MEDROL [Concomitant]
     Indication: BONE PAIN
     Dosage: DAILY DOSE 8 MG
     Dates: start: 20101223
  8. NEXAVAR [Suspect]
     Dosage: UNK
  9. ACICLOVIR [Concomitant]
     Indication: HERPES ZOSTER
     Dosage: DAILY DOSE 3200 MG
     Dates: start: 20101020, end: 20101102
  10. XANAX [Concomitant]
     Indication: ANXIETY
     Dosage: DAILY DOSE .5 ?G
     Dates: start: 20101223
  11. NEXAVAR [Suspect]
     Dosage: 400 MG, BID
     Route: 048
     Dates: start: 20101209, end: 20101223
  12. EUTIROX [Concomitant]
     Dosage: 87.5 ?G, UNK
     Dates: start: 20110121
  13. COLECALCIFEROL [Concomitant]
     Indication: HYPOVITAMINOSIS
     Dosage: DAILY DOSE 10000 IU
     Dates: start: 20100201
  14. DURAGESIC-100 [Concomitant]
     Indication: BONE PAIN
     Dosage: 25 ?G, Q1HR
     Dates: start: 20101223
  15. EUTIROX [Concomitant]
     Indication: POST PROCEDURAL HYPOTHYROIDISM
     Dosage: DAILY DOSE 75 ?G
     Dates: start: 19980801, end: 20110120
  16. LANSOX [Concomitant]
     Indication: PREMEDICATION
     Dosage: DAILY DOSE 30 MG
     Dates: start: 20101223
  17. NEXAVAR [Suspect]
     Dosage: 200 MG, BID
     Route: 048
     Dates: start: 20110214, end: 20110225
  18. OXYCONTIN [Concomitant]
     Indication: NECK PAIN
     Dosage: DAILY DOSE 10 MG
     Dates: start: 20091201, end: 20101222
  19. PARACETAMOL [Concomitant]
     Indication: BONE PAIN
     Dosage: 3000 MG, OM
     Dates: start: 20100701
  20. PARACETAMOL [Concomitant]
     Indication: METASTASES TO BONE
     Dosage: 2000 MG, UNK
     Dates: start: 20101223

REACTIONS (2)
  - BONE ABSCESS [None]
  - DEATH [None]
